FAERS Safety Report 13503068 (Version 1)
Quarter: 2017Q2

REPORT INFORMATION
  Report Type: Spontaneous
  Country: US (occurrence: US)
  Receive Date: 20170501
  Receipt Date: 20170501
  Transmission Date: 20170830
  Serious: Yes (Life-Threatening, Hospitalization, Other)
  Sender: FDA-Public Use
  Company Number: None

PATIENT
  Age: 64 Year
  Sex: Male
  Weight: 111.6 kg

DRUGS (4)
  1. HYDROMORPHONE [Suspect]
     Active Substance: HYDROMORPHONE
  2. MORPHINE [Suspect]
     Active Substance: MORPHINE
     Indication: PAIN
     Dosage: OTHER FREQUENCY:IV PUSH;?
     Route: 042
     Dates: start: 20150326, end: 20150327
  3. HYDROMORPHONE [Suspect]
     Active Substance: HYDROMORPHONE
  4. HYDROMORPHONE [Suspect]
     Active Substance: HYDROMORPHONE

REACTIONS (2)
  - Apnoea [None]
  - Respiratory depression [None]

NARRATIVE: CASE EVENT DATE: 20150326
